FAERS Safety Report 10453290 (Version 2)
Quarter: 2014Q3

REPORT INFORMATION
  Report Type: Spontaneous
  Country: GB (occurrence: GB)
  Receive Date: 20140915
  Receipt Date: 20140917
  Transmission Date: 20150326
  Serious: Yes (Hospitalization)
  Sender: FDA-Public Use
  Company Number: GB-TEVA-507498ISR

PATIENT
  Age: 65 Year

DRUGS (1)
  1. CISPLATIN. [Suspect]
     Active Substance: CISPLATIN
     Route: 042

REACTIONS (6)
  - Cold sweat [Unknown]
  - Abdominal distension [Unknown]
  - Malaise [Unknown]
  - Dizziness [Unknown]
  - Pallor [Unknown]
  - Local swelling [Unknown]

NARRATIVE: CASE EVENT DATE: 20130425
